FAERS Safety Report 6234743-4 (Version None)
Quarter: 2009Q2

REPORT INFORMATION
  Report Type: 
  Country: None (occurrence: None)
  Receive Date: 20090615
  Receipt Date: 20090223
  Transmission Date: 20091009
  Serious: No
  Sender: FDA-Public Use
  Company Number: DSA_33269_2009

PATIENT
  Sex: Female

DRUGS (7)
  1. XENAZINE [Suspect]
     Indication: HUNTINGTON'S CHOREA
     Dosage: 25 MG, 25 MG INCREASED BY 1/2 TABLET EVERY WEEK OR SO
     Dates: start: 20090101, end: 20090202
  2. XENAZINE [Suspect]
     Indication: HUNTINGTON'S CHOREA
     Dosage: 25 MG, 25 MG INCREASED BY 1/2 TABLET EVERY WEEK OR SO
     Dates: start: 20090101
  3. KLONOPIN [Concomitant]
  4. SIMVASTATIN [Concomitant]
  5. ZOLOFT [Concomitant]
  6. TRAZODONE HCL [Concomitant]
  7. NORVASC [Concomitant]

REACTIONS (1)
  - SOMNOLENCE [None]
